FAERS Safety Report 12263705 (Version 2)
Quarter: 2016Q2

REPORT INFORMATION
  Report Type: Spontaneous
  Country: FR (occurrence: FR)
  Receive Date: 20160413
  Receipt Date: 20160421
  Transmission Date: 20160815
  Serious: Yes (Disabling)
  Sender: FDA-Public Use
  Company Number: PHHY2016FR046656

PATIENT
  Age: 68 Year
  Sex: Female

DRUGS (10)
  1. IRINOTECAN HOSPIRA [Suspect]
     Active Substance: IRINOTECAN
     Indication: RECTAL ADENOCARCINOMA
     Dosage: 220 MG, QD
     Route: 042
     Dates: start: 20150929, end: 20150929
  2. POLARAMINE [Suspect]
     Active Substance: DEXCHLORPHENIRAMINE MALEATE
     Indication: URTICARIA
     Dosage: 10 MG, QD
     Route: 042
     Dates: start: 20150929, end: 20150929
  3. METHYLPREDNISOLONE MYLAN [Suspect]
     Active Substance: METHYLPREDNISOLONE
     Indication: VOMITING
     Dosage: 60 MG, QD
     Route: 042
     Dates: start: 20150929, end: 20150929
  4. ZOPHREN [Suspect]
     Active Substance: ONDANSETRON
     Indication: VOMITING
     Dosage: 8 MG/4 ML, UNK
     Route: 042
     Dates: start: 20150929, end: 20150929
  5. FLUOROURACIL ACCORD [Suspect]
     Active Substance: FLUOROURACIL
     Indication: RECTAL ADENOCARCINOMA
     Dosage: 4750 MG, QD
     Route: 042
     Dates: start: 20150929, end: 20150930
  6. ELVORINE [Suspect]
     Active Substance: LEUCOVORIN CALCIUM
     Indication: PRODUCT USED FOR UNKNOWN INDICATION
     Dosage: 284 MG, QD
     Route: 042
     Dates: start: 20150929, end: 20150929
  7. GRANOCYTE [Suspect]
     Active Substance: LENOGRASTIM
     Indication: PRODUCT USED FOR UNKNOWN INDICATION
     Dosage: 34 BILLION IU, QD
     Route: 058
     Dates: start: 20150904, end: 20150906
  8. PLITICAN [Suspect]
     Active Substance: ALIZAPRIDE HYDROCHLORIDE
     Indication: VOMITING
     Dosage: 100 MG, QD
     Route: 042
     Dates: start: 20150929, end: 20150929
  9. ATROPINE AGUETTANT [Suspect]
     Active Substance: ATROPINE
     Indication: PRODUCT USED FOR UNKNOWN INDICATION
     Dosage: 0.25 MG, QD
     Route: 042
     Dates: start: 20150929, end: 20150929
  10. ERBITUX [Suspect]
     Active Substance: CETUXIMAB
     Indication: RECTAL ADENOCARCINOMA
     Dosage: 400 MG, QD
     Route: 042
     Dates: start: 20150929, end: 20150929

REACTIONS (1)
  - Urinary retention [Recovering/Resolving]

NARRATIVE: CASE EVENT DATE: 201510
